FAERS Safety Report 20032618 (Version 2)
Quarter: 2022Q4

REPORT INFORMATION
  Report Type: Report from Study
  Country: FR (occurrence: FR)
  Receive Date: 20211103
  Receipt Date: 20221130
  Transmission Date: 20230113
  Serious: Yes (Death, Other)
  Sender: FDA-Public Use
  Company Number: FR-BAXTER-2021BAX034117

PATIENT
  Age: 61 Year
  Sex: Male

DRUGS (2)
  1. DOXORUBICIN [Suspect]
     Active Substance: DOXORUBICIN
     Indication: Plasma cell myeloma
     Dosage: LINE 5 TREATMENT
     Route: 065
     Dates: end: 20190406
  2. CYCLOPHOSPHAMIDE [Suspect]
     Active Substance: CYCLOPHOSPHAMIDE
     Indication: Plasma cell myeloma
     Dosage: LINE 5 TREATMENT
     Route: 065
     Dates: end: 20190406

REACTIONS (1)
  - Death [Fatal]

NARRATIVE: CASE EVENT DATE: 20190406
